FAERS Safety Report 18623436 (Version 14)
Quarter: 2023Q1

REPORT INFORMATION
  Report Type: Report from Study
  Country: CA (occurrence: CA)
  Receive Date: 20201216
  Receipt Date: 20230329
  Transmission Date: 20230418
  Serious: Yes (Hospitalization, Other)
  Sender: FDA-Public Use
  Company Number: NVSC2020CA323338

PATIENT
  Age: 75 Year
  Sex: Female

DRUGS (5)
  1. SANDOSTATIN LAR DEPOT [Suspect]
     Active Substance: OCTREOTIDE ACETATE
     Indication: Carcinoid tumour
     Dosage: 30 MG, Q4W
     Route: 030
     Dates: start: 20201104
  2. SANDOSTATIN LAR DEPOT [Suspect]
     Active Substance: OCTREOTIDE ACETATE
  3. SANDOSTATIN LAR DEPOT [Suspect]
     Active Substance: OCTREOTIDE ACETATE
  4. METOPROLOL [Concomitant]
     Active Substance: METOPROLOL
     Indication: Product used for unknown indication
     Dosage: 1 DF, QD, 50MG
     Route: 048
  5. LANREOTIDE [Concomitant]
     Active Substance: LANREOTIDE
     Indication: Product used for unknown indication
     Dosage: 1 DOSAGE FORM (EVERY 6 MONTHS)
     Route: 050

REACTIONS (13)
  - Graft infection [Unknown]
  - Malignant neoplasm of eye [Unknown]
  - Second primary malignancy [Unknown]
  - Eye disorder [Unknown]
  - Mass [Unknown]
  - Eye swelling [Unknown]
  - Pain [Recovering/Resolving]
  - Post procedural contusion [Unknown]
  - Nausea [Unknown]
  - Blood pressure decreased [Unknown]
  - Weight decreased [Unknown]
  - Injection site haemorrhage [Unknown]
  - Abdominal pain upper [Recovered/Resolved]

NARRATIVE: CASE EVENT DATE: 20200101
